FAERS Safety Report 23744571 (Version 4)
Quarter: 2025Q1

REPORT INFORMATION
  Report Type: Spontaneous
  Country: NL (occurrence: NL)
  Receive Date: 20240415
  Receipt Date: 20250129
  Transmission Date: 20250409
  Serious: Yes (Life-Threatening, Hospitalization, Disabling)
  Sender: TEVA
  Company Number: None

PATIENT
  Age: 67 Year
  Sex: Male
  Weight: 59 kg

DRUGS (1)
  1. CAPECITABINE [Suspect]
     Active Substance: CAPECITABINE
     Indication: Colon cancer
     Dosage: 2X PER DAY 1900 MG, TABLET FO 150MG / BRAND NAME NOT SPECIFIED
     Route: 048
     Dates: start: 20221020, end: 20221122

REACTIONS (1)
  - Mucosal inflammation [Recovered/Resolved]
